FAERS Safety Report 7000662-9 (Version None)
Quarter: 2010Q3

REPORT INFORMATION
  Report Type: 
  Country: None (occurrence: None)
  Receive Date: 20100920
  Receipt Date: 20100617
  Transmission Date: 20110219
  Serious: No
  Sender: FDA-Public Use
  Company Number: US-ASTRAZENECA-2010SE22001

PATIENT
  Sex: Female
  Weight: 72.6 kg

DRUGS (9)
  1. SEROQUEL XR [Suspect]
     Indication: ANXIETY
     Route: 048
     Dates: start: 20080101, end: 20100201
  2. SEROQUEL XR [Suspect]
     Indication: DEPRESSION
     Route: 048
     Dates: start: 20080101, end: 20100201
  3. SEROQUEL XR [Suspect]
     Indication: BIPOLAR DISORDER
     Route: 048
     Dates: start: 20080101, end: 20100201
  4. SYNTHROID [Concomitant]
  5. ZOLOFT [Concomitant]
  6. SERTRALINE HYDROCHLORIDE [Concomitant]
  7. CLONAZEPAM [Concomitant]
  8. DICLOFENAC [Concomitant]
  9. LIPITOR [Concomitant]

REACTIONS (6)
  - BALANCE DISORDER [None]
  - DEMENTIA [None]
  - FALL [None]
  - MEMORY IMPAIRMENT [None]
  - THERAPY REGIMEN CHANGED [None]
  - TREMOR [None]
